FAERS Safety Report 6686943-7 (Version None)
Quarter: 2010Q2

REPORT INFORMATION
  Report Type: 
  Country: None (occurrence: None)
  Receive Date: 20100416
  Receipt Date: 20100416
  Transmission Date: 20101027
  Serious: Yes (Other)
  Sender: FDA-Public Use
  Company Number: None

PATIENT
  Sex: Female
  Weight: 59.8748 kg

DRUGS (2)
  1. DILT-CD [Suspect]
     Indication: ATRIAL FIBRILLATION
     Dates: start: 20100331, end: 20100408
  2. DILT-CD [Suspect]
     Indication: HYPERTENSION
     Dates: start: 20100331, end: 20100408

REACTIONS (2)
  - OEDEMA PERIPHERAL [None]
  - PRODUCT SUBSTITUTION ISSUE [None]
